FAERS Safety Report 17155893 (Version 1)
Quarter: 2019Q4

REPORT INFORMATION
  Report Type: Report from Study
  Country: US (occurrence: US)
  Receive Date: 20191215
  Receipt Date: 20191215
  Transmission Date: 20200122
  Serious: No
  Sender: FDA-Public Use
  Company Number: NVSC2019US069816

PATIENT
  Sex: Female
  Weight: 75.28 kg

DRUGS (1)
  1. ENTRESTO [Suspect]
     Active Substance: SACUBITRIL\VALSARTAN
     Indication: PRODUCT USED FOR UNKNOWN INDICATION
     Dosage: 1 DF (97MG OF SACUBITRIL AND 103 MG OF VALSARTAN), BID
     Route: 048

REACTIONS (1)
  - Hypotension [Unknown]
